FAERS Safety Report 8532201-5 (Version None)
Quarter: 2012Q3

REPORT INFORMATION
  Report Type: 
  Country: None (occurrence: None)
  Receive Date: 20120723
  Receipt Date: 20120718
  Transmission Date: 20120928
  Serious: Yes (Hospitalization, Other)
  Sender: FDA-Public Use
  Company Number: GB-ROCHE-790576

PATIENT
  Sex: Female
  Weight: 51.756 kg

DRUGS (15)
  1. NITRO-DUR [Concomitant]
  2. BISOPROLOL FUMARATE [Concomitant]
  3. ASPIRIN [Concomitant]
  4. PREDNISONE [Concomitant]
  5. LEVOFLOXACIN [Concomitant]
     Dates: start: 20120715, end: 20120721
  6. ASPIRIN [Concomitant]
  7. FOSAMAX [Concomitant]
  8. ATIVAN [Concomitant]
  9. RAMIPRIL [Concomitant]
  10. OXYCODONE HCL AND ACETAMINOPHEN [Concomitant]
  11. LIPITOR [Concomitant]
  12. PANTOPRAZOLE [Concomitant]
  13. NORVASC [Concomitant]
  14. ACTEMRA [Suspect]
     Indication: RHEUMATOID ARTHRITIS
     Route: 042
  15. PANTOPRAZOLE SODIUM [Concomitant]

REACTIONS (6)
  - THROMBOSIS [None]
  - PNEUMONIA [None]
  - INCOHERENT [None]
  - ABASIA [None]
  - HYPERKALAEMIA [None]
  - DEHYDRATION [None]
